FAERS Safety Report 9706463 (Version 1)
Quarter: 2013Q4

REPORT INFORMATION
  Report Type: Spontaneous
  Country: CA (occurrence: CA)
  Receive Date: 20131125
  Receipt Date: 20131125
  Transmission Date: 20140711
  Serious: Yes (Hospitalization, Other)
  Sender: FDA-Public Use
  Company Number: CA-ROCHE-1303197

PATIENT
  Age: 41 Year
  Sex: Male

DRUGS (8)
  1. RITUXAN [Suspect]
     Indication: PRODUCT USED FOR UNKNOWN INDICATION
     Route: 042
  2. DOXORUBICIN HYDROCHLORIDE [Suspect]
     Indication: PRODUCT USED FOR UNKNOWN INDICATION
     Route: 065
  3. VINCRISTINE SULFATE [Suspect]
     Indication: PRODUCT USED FOR UNKNOWN INDICATION
     Route: 065
  4. PREDNISONE [Suspect]
     Indication: PRODUCT USED FOR UNKNOWN INDICATION
     Route: 065
  5. CYCLOPHOSPHAMIDE [Suspect]
     Indication: PRODUCT USED FOR UNKNOWN INDICATION
     Route: 042
  6. NEUPOGEN [Concomitant]
     Route: 042
  7. EPREX [Concomitant]
     Route: 042
  8. ENOXAPARIN [Concomitant]
     Route: 065

REACTIONS (13)
  - Diarrhoea [Unknown]
  - Ecthyma [Unknown]
  - Febrile neutropenia [Unknown]
  - Pseudomonas infection [Unknown]
  - Blood creatinine increased [Unknown]
  - Erythema [Unknown]
  - Haemoglobin decreased [Unknown]
  - Malaise [Unknown]
  - Platelet count decreased [Unknown]
  - Pyrexia [Unknown]
  - Skin haemorrhage [Unknown]
  - Skin lesion [Unknown]
  - Skin necrosis [Unknown]
